FAERS Safety Report 14688932 (Version 2)
Quarter: 2018Q3

REPORT INFORMATION
  Report Type: Spontaneous
  Country: GB (occurrence: GB)
  Receive Date: 20180328
  Receipt Date: 20180919
  Transmission Date: 20181010
  Serious: Yes (Hospitalization, Other)
  Sender: FDA-Public Use
  Company Number: GB-SA-2018SA083318

PATIENT
  Age: 52 Year
  Sex: Female

DRUGS (1)
  1. ALEMTUZUMAB [Suspect]
     Active Substance: ALEMTUZUMAB
     Indication: MULTIPLE SCLEROSIS
     Dosage: UNK UNK,UNK
     Route: 041
     Dates: start: 201706, end: 201706

REACTIONS (12)
  - Multiple sclerosis [Recovered/Resolved with Sequelae]
  - Balance disorder [Unknown]
  - Disorientation [Unknown]
  - Cognitive disorder [Not Recovered/Not Resolved]
  - Asthenia [Unknown]
  - Gait disturbance [Unknown]
  - Apathy [Unknown]
  - Sensory processing disorder [Unknown]
  - Functional gastrointestinal disorder [Unknown]
  - Dysarthria [Unknown]
  - Bladder dysfunction [Unknown]
  - Dysphagia [Not Recovered/Not Resolved]

NARRATIVE: CASE EVENT DATE: 201712
